FAERS Safety Report 18918171 (Version 1)
Quarter: 2021Q1

REPORT INFORMATION
  Report Type: Spontaneous
  Country: GB (occurrence: GB)
  Receive Date: 20210219
  Receipt Date: 20210219
  Transmission Date: 20210420
  Serious: Yes (Other)
  Sender: FDA-Public Use
  Company Number: GB-TEVA-2021-GB-1880322

PATIENT
  Age: 73 Year
  Sex: Female
  Weight: 72 kg

DRUGS (8)
  1. DOXAZOSIN [Concomitant]
     Active Substance: DOXAZOSIN MESYLATE
     Indication: HYPERTENSION
  2. PHARMA ROTH ATENOLOL [Concomitant]
     Indication: HYPERTENSION
  3. NAPROXEN. [Suspect]
     Active Substance: NAPROXEN
     Route: 065
  4. BRISTOL LABS RAMIPRIL [Concomitant]
     Active Substance: RAMIPRIL
     Indication: HYPERTENSION
  5. METHOTREXATE. [Concomitant]
     Active Substance: METHOTREXATE
     Indication: RHEUMATOID ARTHRITIS
  6. VITAMIN D3 [Concomitant]
     Active Substance: CHOLECALCIFEROL
  7. ACCORD?UK FOLIC ACID [Concomitant]
     Indication: RHEUMATOID ARTHRITIS
  8. ACCORD?UK BENDROFLUAZIDE [Concomitant]
     Indication: HYPERTENSION

REACTIONS (4)
  - Abdominal discomfort [Unknown]
  - Influenza like illness [Recovering/Resolving]
  - Fatigue [Unknown]
  - Nausea [Unknown]

NARRATIVE: CASE EVENT DATE: 20210130
